FAERS Safety Report 9924284 (Version 1)
Quarter: 2014Q1

REPORT INFORMATION
  Report Type: Spontaneous
  Country: IT (occurrence: IT)
  Receive Date: 20140226
  Receipt Date: 20140226
  Transmission Date: 20141002
  Serious: Yes (Hospitalization)
  Sender: FDA-Public Use
  Company Number: IT-RANBAXY-2014RR-78354

PATIENT
  Age: 69 Year
  Sex: Male

DRUGS (1)
  1. AMOXICILLIN/CLAVULANIC ACID [Suspect]
     Indication: PRODUCT USED FOR UNKNOWN INDICATION
     Dosage: 1 G COMPLETE
     Route: 048
     Dates: start: 20131229, end: 20131229

REACTIONS (1)
  - Anaphylactic reaction [Recovering/Resolving]
